FAERS Safety Report 21128611 (Version 1)
Quarter: 2022Q3

REPORT INFORMATION
  Report Type: Report from Study
  Country: US (occurrence: US)
  Receive Date: 20220725
  Receipt Date: 20220725
  Transmission Date: 20221026
  Serious: No
  Sender: FDA-Public Use
  Company Number: US-AGIOS-2207US03089

PATIENT
  Age: 53 Year
  Sex: Male

DRUGS (3)
  1. MITAPIVAT [Suspect]
     Active Substance: MITAPIVAT
     Indication: Pyruvate kinase deficiency anaemia
     Dosage: 20 MILLIGRAM, BID
     Route: 048
     Dates: start: 20220506
  2. MITAPIVAT [Suspect]
     Active Substance: MITAPIVAT
     Dosage: 5 MILLIGRAM, BID
     Route: 048
     Dates: start: 20220511
  3. MITAPIVAT [Suspect]
     Active Substance: MITAPIVAT
     Dosage: 50 MILLIGRAM, BID
     Route: 048
     Dates: start: 20220701

REACTIONS (1)
  - Haemoglobin decreased [Unknown]
